FAERS Safety Report 8485149-9 (Version None)
Quarter: 2012Q3

REPORT INFORMATION
  Report Type: 
  Country: None (occurrence: None)
  Receive Date: 20120703
  Receipt Date: 20120702
  Transmission Date: 20120928
  Serious: Yes (Other)
  Sender: FDA-Public Use
  Company Number: US-PFIZER INC-2010US-36111

PATIENT
  Sex: Female
  Weight: 83.91 kg

DRUGS (5)
  1. PREVACID [Concomitant]
     Dosage: UNK
  2. VALIUM [Concomitant]
     Dosage: UNK
  3. SYNTHROID [Concomitant]
     Dosage: UNK
  4. DICLOXACILLIN [Concomitant]
     Dosage: UNK
     Route: 065
  5. CALAN [Suspect]
     Indication: BLOOD PRESSURE
     Dosage: 240 MG, 1-2 TAB/DAY,1 IN MORNING AND 1/2 -1 TAB AT BEDTIME
     Route: 065

REACTIONS (17)
  - HEART RATE DECREASED [None]
  - MALAISE [None]
  - HEADACHE [None]
  - FEELING DRUNK [None]
  - VISUAL IMPAIRMENT [None]
  - NAUSEA [None]
  - VOMITING [None]
  - NECK PAIN [None]
  - ANXIETY [None]
  - BLOOD PRESSURE DECREASED [None]
  - PALPITATIONS [None]
  - MEMORY IMPAIRMENT [None]
  - BLOOD PRESSURE FLUCTUATION [None]
  - ARTHRALGIA [None]
  - OVERDOSE [None]
  - TINNITUS [None]
  - DIFFUSE VASCULITIS [None]
